FAERS Safety Report 14034818 (Version 1)
Quarter: 2017Q4

REPORT INFORMATION
  Report Type: Report from Study
  Country: US (occurrence: US)
  Receive Date: 20171003
  Receipt Date: 20171003
  Transmission Date: 20180321
  Serious: Yes (Hospitalization)
  Sender: FDA-Public Use
  Company Number: US-ASTRAZENECA-2017SE99109

PATIENT
  Age: 964 Month
  Sex: Female
  Weight: 79.4 kg

DRUGS (19)
  1. BRILINTA [Suspect]
     Active Substance: TICAGRELOR
     Indication: CHEST PAIN
     Dosage: TWO TABLETS THE FIRST DAY AND ONE TABLET EVERY DAY AFTER THAT
     Route: 048
     Dates: start: 201708, end: 201708
  2. ZINC. [Concomitant]
     Active Substance: ZINC
     Dosage: DAILY
     Route: 048
  3. METOPROLOL TARTRATE. [Suspect]
     Active Substance: METOPROLOL TARTRATE
     Indication: BLOOD PRESSURE ABNORMAL
     Route: 048
  4. INSULIN [Concomitant]
     Active Substance: INSULIN NOS
     Indication: DIABETES MELLITUS
     Dosage: PRE-FILLED SYRINGE, DAILY
     Route: 058
  5. WARFARIN [Concomitant]
     Active Substance: WARFARIN
     Route: 048
     Dates: start: 201708
  6. CLOPIDOGREL [Concomitant]
     Active Substance: CLOPIDOGREL BISULFATE
     Route: 048
  7. BRILINTA [Suspect]
     Active Substance: TICAGRELOR
     Indication: STENT PLACEMENT
     Dosage: TWO TABLETS THE FIRST DAY AND ONE TABLET EVERY DAY AFTER THAT
     Route: 048
     Dates: start: 201708, end: 201708
  8. ATORVASTATIN [Concomitant]
     Active Substance: ATORVASTATIN
     Route: 048
  9. LEVOTHYROXINE. [Concomitant]
     Active Substance: LEVOTHYROXINE
     Route: 048
  10. FUROSEMIDE. [Concomitant]
     Active Substance: FUROSEMIDE
     Route: 048
  11. ALLOPURINOL. [Concomitant]
     Active Substance: ALLOPURINOL
     Indication: GOUT
     Route: 048
  12. BRILINTA [Suspect]
     Active Substance: TICAGRELOR
     Indication: ARTERIAL OCCLUSIVE DISEASE
     Dosage: TWO TABLETS THE FIRST DAY AND ONE TABLET EVERY DAY AFTER THAT
     Route: 048
     Dates: start: 201708, end: 201708
  13. GLIMEPIRIDE. [Concomitant]
     Active Substance: GLIMEPIRIDE
  14. RAMIPRIL. [Concomitant]
     Active Substance: RAMIPRIL
     Indication: BLOOD PRESSURE ABNORMAL
     Route: 048
  15. VITAMIN B NOS [Concomitant]
     Active Substance: VITAMIN B
     Dosage: DAILY
     Route: 048
  16. SPIRONOLACTONE. [Concomitant]
     Active Substance: SPIRONOLACTONE
     Route: 048
  17. BRILINTA [Suspect]
     Active Substance: TICAGRELOR
     Indication: MYOCARDIAL INFARCTION
     Dosage: TWO TABLETS THE FIRST DAY AND ONE TABLET EVERY DAY AFTER THAT
     Route: 048
     Dates: start: 201708, end: 201708
  18. ELIQUIS [Concomitant]
     Active Substance: APIXABAN
     Dates: start: 201708
  19. XARELTO [Concomitant]
     Active Substance: RIVAROXABAN
     Dates: start: 201708

REACTIONS (9)
  - Atrial fibrillation [Unknown]
  - Hypersensitivity [Unknown]
  - Cardiac disorder [Recovered/Resolved]
  - Off label use [Unknown]
  - Chest discomfort [Recovered/Resolved]
  - Dyspnoea [Recovered/Resolved]
  - Body height decreased [Not Recovered/Not Resolved]
  - Intentional product use issue [Unknown]
  - Epistaxis [Recovered/Resolved]

NARRATIVE: CASE EVENT DATE: 201708
